FAERS Safety Report 10774218 (Version 1)
Quarter: 2015Q1

REPORT INFORMATION
  Report Type: Report from Study
  Country: GB (occurrence: GB)
  Receive Date: 20150208
  Receipt Date: 20150208
  Transmission Date: 20150721
  Serious: Yes (Other)
  Sender: FDA-Public Use
  Company Number: GB-ROCHE-1533525

PATIENT
  Sex: Male
  Weight: 66 kg

DRUGS (4)
  1. BEVACIZUMAB [Suspect]
     Active Substance: BEVACIZUMAB
     Indication: GASTRIC CANCER
     Dosage: LAST DOSE PRIOR TO SAE 27/MAR/2013
     Route: 042
     Dates: start: 20130213
  2. CAPECITABINE. [Suspect]
     Active Substance: CAPECITABINE
     Indication: GASTRIC CANCER
     Dosage: LAST DOSE PRIOR TO SAE 13/APR/2013
     Route: 048
     Dates: start: 20130213
  3. CISPLATIN. [Suspect]
     Active Substance: CISPLATIN
     Indication: GASTRIC CANCER
     Dosage: LAST PRIOR TO SAE 27/MAR/2013
     Route: 042
     Dates: start: 20130213
  4. EPIRUBICIN [Suspect]
     Active Substance: EPIRUBICIN
     Indication: GASTRIC CANCER
     Dosage: LAST PRIOR TO SAE 27/MAR/2013
     Route: 042
     Dates: start: 20130213

REACTIONS (1)
  - Impaired healing [Not Recovered/Not Resolved]

NARRATIVE: CASE EVENT DATE: 20130625
